FAERS Safety Report 19921756 (Version 1)
Quarter: 2021Q4

REPORT INFORMATION
  Report Type: Spontaneous
  Country: JP (occurrence: JP)
  Receive Date: 20211006
  Receipt Date: 20211006
  Transmission Date: 20220304
  Serious: Yes (Hospitalization)
  Sender: FDA-Public Use
  Company Number: JP-TEVA-2021-JP-1960964

PATIENT
  Age: 79 Year
  Sex: Female

DRUGS (5)
  1. GLIMEPIRIDE [Suspect]
     Active Substance: GLIMEPIRIDE
     Indication: Type 2 diabetes mellitus
     Dosage: 4 MILLIGRAM DAILY;
     Route: 065
  2. MIGLITOL [Suspect]
     Active Substance: MIGLITOL
     Indication: Type 2 diabetes mellitus
     Dosage: 150 MILLIGRAM DAILY;
     Route: 065
  3. INSULIN GLARGINE [Suspect]
     Active Substance: INSULIN GLARGINE
     Indication: Type 2 diabetes mellitus
     Dosage: 8 UNITS/DAY
     Route: 065
  4. SITAGLIPTIN [Suspect]
     Active Substance: SITAGLIPTIN
     Indication: Type 2 diabetes mellitus
     Dosage: 50 MILLIGRAM DAILY;
     Route: 065
  5. DEXTROSE [Suspect]
     Active Substance: DEXTROSE
     Indication: Hypoglycaemic encephalopathy
     Route: 065

REACTIONS (3)
  - Hypoglycaemic encephalopathy [Recovered/Resolved]
  - Hemiplegia [Recovering/Resolving]
  - Reperfusion injury [Recovering/Resolving]
